FAERS Safety Report 23646865 (Version 1)
Quarter: 2024Q1

REPORT INFORMATION
  Report Type: Spontaneous
  Country: JP (occurrence: JP)
  Receive Date: 20240319
  Receipt Date: 20240319
  Transmission Date: 20240410
  Serious: Yes (Death)
  Sender: FDA-Public Use
  Company Number: JP-RDY-LIT/JPN/24/0004514

PATIENT
  Age: 83 Year
  Sex: Male

DRUGS (2)
  1. AZACITIDINE [Suspect]
     Active Substance: AZACITIDINE
     Indication: Acute myeloid leukaemia
     Dosage: ONE CYCLE
  2. VENETOCLAX [Suspect]
     Active Substance: VENETOCLAX
     Indication: Acute myeloid leukaemia
     Dosage: ONE CYCLE

REACTIONS (6)
  - Pneumonia [Fatal]
  - Cytopenia [Fatal]
  - Myelosuppression [Fatal]
  - Anaemia [Fatal]
  - Thrombocytopenia [Fatal]
  - Neutropenia [Fatal]
